FAERS Safety Report 9867989 (Version 1)
Quarter: 2014Q1

REPORT INFORMATION
  Report Type: Spontaneous
  Country: FR (occurrence: FR)
  Receive Date: 20140204
  Receipt Date: 20140204
  Transmission Date: 20141002
  Serious: Yes (Other)
  Sender: FDA-Public Use
  Company Number: FR-BRISTOL-MYERS SQUIBB COMPANY-20112579

PATIENT
  Age: 45 Year
  Sex: Male

DRUGS (3)
  1. REYATAZ CAPS 300 MG [Suspect]
     Indication: HIV INFECTION
     Route: 048
     Dates: start: 20050615, end: 20130114
  2. KIVEXA [Concomitant]
     Indication: HIV INFECTION
     Dosage: TABS
     Route: 048
     Dates: start: 20050615
  3. NORVIR [Concomitant]
     Indication: HIV INFECTION
     Route: 048
     Dates: start: 20050615

REACTIONS (2)
  - Calculus urethral [Recovered/Resolved]
  - Neurosyphilis [Unknown]
